FAERS Safety Report 4972726-2 (Version None)
Quarter: 2006Q1

REPORT INFORMATION
  Report Type: 
  Country: None (occurrence: None)
  Receive Date: 20060215
  Receipt Date: 20051221
  Transmission Date: 20060701
  Serious: No
  Sender: FDA-Public Use
  Company Number: US200512003795

PATIENT
  Age: 73 Year
  Sex: Male

DRUGS (6)
  1. CIALIS [Suspect]
     Indication: ERECTILE DYSFUNCTION
     Dosage: 20 MG
     Dates: start: 20051214
  2. LIPITOR [Concomitant]
  3. PLAVIX [Concomitant]
  4. ASA (ASPIRIN (ACETYLSALICYLIC ACID) [Concomitant]
  5. ZETIA [Concomitant]
  6. PAXIL [Concomitant]

REACTIONS (1)
  - DRUG INEFFECTIVE [None]
